FAERS Safety Report 7271681-2 (Version None)
Quarter: 2011Q1

REPORT INFORMATION
  Report Type: 
  Country: None (occurrence: None)
  Receive Date: 20110203
  Receipt Date: 20110121
  Transmission Date: 20110831
  Serious: Yes (Death)
  Sender: FDA-Public Use
  Company Number: JP-ACTELION-A-CH2011-44287

PATIENT
  Age: 59 Year
  Sex: Male

DRUGS (5)
  1. BERAPROST SODIUM [Concomitant]
  2. SILDENAFIL CITRATE [Concomitant]
  3. PREDNISOLONE [Concomitant]
  4. OXYGEN [Concomitant]
  5. TRACLEER [Suspect]
     Indication: PULMONARY ARTERIAL HYPERTENSION
     Dosage: 62.5 MG, BID
     Route: 048
     Dates: start: 20081122, end: 20101227

REACTIONS (1)
  - CARDIAC FAILURE [None]
